FAERS Safety Report 10154679 (Version 1)
Quarter: 2014Q2

REPORT INFORMATION
  Report Type: Spontaneous
  Country: US (occurrence: US)
  Receive Date: 20140506
  Receipt Date: 20140506
  Transmission Date: 20141212
  Serious: No
  Sender: FDA-Public Use
  Company Number: US-009507513-1404USA015449

PATIENT
  Age: 68 Year
  Sex: Male

DRUGS (3)
  1. PRINIVIL [Suspect]
     Indication: HYPERTENSION
     Route: 048
  2. PRINIVIL [Interacting]
     Indication: GOUT
  3. ALTEPLASE [Interacting]
     Indication: CEREBROVASCULAR ACCIDENT
     Route: 042

REACTIONS (2)
  - Drug interaction [Recovered/Resolved]
  - Angioedema [Recovered/Resolved]
